FAERS Safety Report 10222851 (Version 1)
Quarter: 2014Q2

REPORT INFORMATION
  Report Type: Spontaneous
  Country: US (occurrence: None)
  Receive Date: 20140606
  Receipt Date: 20140606
  Transmission Date: 20141212
  Serious: Yes (Other)
  Sender: FDA-Public Use
  Company Number: None

PATIENT
  Age: 68 Year
  Sex: Male
  Weight: 75.7 kg

DRUGS (1)
  1. SOTALOL [Suspect]
     Route: 048
     Dates: start: 20140528, end: 20140529

REACTIONS (2)
  - Tachycardia [None]
  - Ventricular tachycardia [None]
